FAERS Safety Report 16814968 (Version 1)
Quarter: 2019Q4

REPORT INFORMATION
  Report Type: Spontaneous
  Country: US (occurrence: US)
  Receive Date: 20190916
  Receipt Date: 20190916
  Transmission Date: 20200122
  Serious: Yes (Hospitalization)
  Sender: FDA-Public Use
  Company Number: None

PATIENT
  Age: 68 Year
  Sex: Male

DRUGS (1)
  1. CORTISONE [Suspect]
     Active Substance: CORTISONE
     Indication: MOVEMENT DISORDER
     Dosage: ?          OTHER STRENGTH:UNKNOWN;OTHER FREQUENCY:2-3 TIMES PER YEAR;?
     Route: 058
     Dates: start: 20190816, end: 20190816

REACTIONS (1)
  - Infection [None]

NARRATIVE: CASE EVENT DATE: 20190816
